FAERS Safety Report 9943139 (Version 1)
Quarter: 2014Q1

REPORT INFORMATION
  Report Type: Spontaneous
  Country: US (occurrence: US)
  Receive Date: 20140303
  Receipt Date: 20140303
  Transmission Date: 20141002
  Serious: Yes (Disabling, Other)
  Sender: FDA-Public Use
  Company Number: US-VIIV HEALTHCARE LIMITED-A1061713A

PATIENT
  Age: 31 Year
  Sex: Male

DRUGS (10)
  1. TIVICAY [Suspect]
     Indication: HIV INFECTION
     Dosage: 50MG PER DAY
     Route: 048
     Dates: start: 201312
  2. TRUVADA [Concomitant]
  3. LYRICA [Concomitant]
  4. TEMAZEPAM [Concomitant]
  5. CITALOPRAM [Concomitant]
  6. OMEPRAZOLE [Concomitant]
  7. VALACYCLOVIR [Concomitant]
  8. SEROQUEL [Concomitant]
  9. ARIPIPRAZOLE [Concomitant]
  10. PROPANOLOL [Concomitant]

REACTIONS (6)
  - Abdominal pain [Not Recovered/Not Resolved]
  - Lipase increased [Not Recovered/Not Resolved]
  - Blood alkaline phosphatase increased [Not Recovered/Not Resolved]
  - Mean cell volume increased [Not Recovered/Not Resolved]
  - Mean cell haemoglobin increased [Not Recovered/Not Resolved]
  - Mean platelet volume decreased [Not Recovered/Not Resolved]
